FAERS Safety Report 5864194-3 (Version None)
Quarter: 2008Q3

REPORT INFORMATION
  Report Type: 
  Country: None (occurrence: None)
  Receive Date: 20080829
  Receipt Date: 20080818
  Transmission Date: 20090109
  Serious: Yes (Other)
  Sender: FDA-Public Use
  Company Number: AU-ROCHE-472893

PATIENT
  Sex: Male
  Weight: 63 kg

DRUGS (2)
  1. PEGASYS [Suspect]
     Dosage: DATE OF LAST DOSE PRIOR TO SAE: 18 AUGUST 2006.
     Route: 058
     Dates: start: 20060310, end: 20060818
  2. BUPRENORPHINE HCL [Concomitant]
     Dates: start: 20060415

REACTIONS (1)
  - MUSCLE TWITCHING [None]
